FAERS Safety Report 7439901-9 (Version None)
Quarter: 2011Q2

REPORT INFORMATION
  Report Type: 
  Country: None (occurrence: None)
  Receive Date: 20110427
  Receipt Date: 20110418
  Transmission Date: 20111010
  Serious: Yes (Hospitalization, Other)
  Sender: FDA-Public Use
  Company Number: CA-TEVA-278218USA

PATIENT
  Age: 75 Year
  Sex: Female
  Weight: 72.64 kg

DRUGS (3)
  1. ALLERGY MEDICATION [Concomitant]
  2. PARACETAMOL [Concomitant]
  3. RISEDRONATE SODIUM [Suspect]
     Dosage: 5 MILLIGRAM;
     Route: 048

REACTIONS (4)
  - JAW DISORDER [None]
  - PAIN [None]
  - AURICULAR SWELLING [None]
  - DYSPHAGIA [None]
